FAERS Safety Report 7289998-4 (Version None)
Quarter: 2011Q1

REPORT INFORMATION
  Report Type: 
  Country: None (occurrence: None)
  Receive Date: 20110214
  Receipt Date: 20110204
  Transmission Date: 20110831
  Serious: Yes (Other)
  Sender: FDA-Public Use
  Company Number: BR-US-EMD SERONO, INC.-7019486

PATIENT
  Sex: Female

DRUGS (9)
  1. AMITRIPTYLINE HCL [Concomitant]
  2. LYRICA [Concomitant]
     Dates: start: 20100101
  3. REBIF [Suspect]
     Indication: RELAPSING-REMITTING MULTIPLE SCLEROSIS
     Route: 058
     Dates: start: 20100401, end: 20100901
  4. REBIF [Suspect]
     Route: 058
     Dates: start: 20100901, end: 20100101
  5. CARBAMAZEPINE [Concomitant]
  6. CYMBALTA [Concomitant]
     Dates: start: 20100101
  7. FARMATHON [Concomitant]
  8. PARACETAMOL [Concomitant]
  9. REBIF [Suspect]
     Route: 058
     Dates: start: 20100101

REACTIONS (16)
  - BACK PAIN [None]
  - HYPOKINESIA [None]
  - ABDOMINAL PAIN UPPER [None]
  - DIZZINESS [None]
  - INFLUENZA LIKE ILLNESS [None]
  - PERICARDIAL EFFUSION [None]
  - HYPOAESTHESIA [None]
  - PAIN [None]
  - GASTRIC DISORDER [None]
  - SENSATION OF HEAVINESS [None]
  - INJECTION SITE ERYTHEMA [None]
  - MYALGIA [None]
  - HEADACHE [None]
  - INAPPROPRIATE SCHEDULE OF DRUG ADMINISTRATION [None]
  - ANAEMIA [None]
  - FATIGUE [None]
